FAERS Safety Report 5255886-8 (Version None)
Quarter: 2007Q1

REPORT INFORMATION
  Report Type: 
  Country: None (occurrence: None)
  Receive Date: 20070301
  Receipt Date: 20070215
  Transmission Date: 20070707
  Serious: Yes (Hospitalization)
  Sender: FDA-Public Use
  Company Number: 236780

PATIENT
  Age: 63 Year
  Sex: Male

DRUGS (12)
  1. BEVACIZUMAB(BEVACIZUMAB) PWDR + SOLVENT,INFUSION SOLN, 100MG [Suspect]
     Indication: DRUG USE FOR UNKNOWN INDICATION
  2. LEVOTHYROXINE SODIUM [Concomitant]
  3. VANCOMYCIN HYDROCHLORIDE [Concomitant]
  4. FORTAZ [Concomitant]
  5. FLAGYL [Concomitant]
  6. PROTONIX [Concomitant]
  7. NORVASC [Concomitant]
  8. PULMICORT [Concomitant]
  9. FOLIC ACID [Concomitant]
  10. PREDNISONE TAB [Concomitant]
  11. DILAUDID [Concomitant]
  12. OXYGEN (OXYGEN) [Concomitant]

REACTIONS (8)
  - BRONCHIAL OBSTRUCTION [None]
  - CHRONIC OBSTRUCTIVE PULMONARY DISEASE [None]
  - CONDITION AGGRAVATED [None]
  - DIVERTICULAR PERFORATION [None]
  - LUNG INFECTION PSEUDOMONAL [None]
  - LUNG NEOPLASM [None]
  - PULMONARY THROMBOSIS [None]
  - RESPIRATORY DISTRESS [None]
